FAERS Safety Report 10026824 (Version 4)
Quarter: 2015Q3

REPORT INFORMATION
  Report Type: Spontaneous
  Country: JP (occurrence: JP)
  Receive Date: 20140321
  Receipt Date: 20150729
  Transmission Date: 20151125
  Serious: Yes (Other)
  Sender: FDA-Public Use
  Company Number: JP-ASTRAZENECA-2014SE12114

PATIENT
  Sex: Female

DRUGS (5)
  1. LODOPIN [Concomitant]
     Active Substance: ZOTEPINE
  2. HIRNAMIN [Concomitant]
     Active Substance: PHENOTHIAZINE
  3. SEROQUEL [Suspect]
     Active Substance: QUETIAPINE FUMARATE
     Indication: PRODUCT USED FOR UNKNOWN INDICATION
     Route: 048
  4. LULLAN [Concomitant]
     Active Substance: PEROSPIRONE HYDROCHLORIDE
  5. ABILIFY [Concomitant]
     Active Substance: ARIPIPRAZOLE

REACTIONS (4)
  - Weight decreased [Unknown]
  - Dysarthria [Unknown]
  - Depressed level of consciousness [Not Recovered/Not Resolved]
  - Pruritus [Unknown]
